FAERS Safety Report 8773425 (Version 3)
Quarter: 2012Q4

REPORT INFORMATION
  Report Type: 
  Country: CH (occurrence: CH)
  Receive Date: 20120907
  Receipt Date: 20120919
  Transmission Date: 20130627
  Serious: Yes (Death)
  Sender: FDA-Public Use
  Company Number: CH-SANOFI-AVENTIS-2012SA062664

PATIENT
  Age: 60 Year
  Sex: Male

DRUGS (6)
  1. DRONEDARONE [Suspect]
     Indication: ATRIAL FIBRILLATION
     Route: 065
     Dates: start: 20110314, end: 20120817
  2. MICARDIS PLUS [Concomitant]
     Dosage: 80/12.5_1-0-0
     Route: 048
  3. MARCOUMAR [Concomitant]
  4. ATORVASTATIN [Concomitant]
     Route: 048
  5. AMLODIPINE [Concomitant]
     Route: 048
  6. BILOL [Concomitant]
     Route: 048

REACTIONS (2)
  - Sudden death [Fatal]
  - Ventricular fibrillation [Fatal]
